FAERS Safety Report 6453091-0 (Version None)
Quarter: 2009Q4

REPORT INFORMATION
  Report Type: 
  Country: None (occurrence: None)
  Receive Date: 20091123
  Receipt Date: 20091123
  Transmission Date: 20100525
  Serious: Yes (Disabling)
  Sender: FDA-Public Use
  Company Number: None

PATIENT
  Sex: Female
  Weight: 90.7194 kg

DRUGS (2)
  1. ABILIFY [Suspect]
     Indication: PSYCHIATRIC SYMPTOM
     Dosage: 10 MG 1 DAY
     Dates: start: 20030101, end: 20050101
  2. GEON [Suspect]
     Dosage: 10MG 1 DAY
     Dates: start: 20030101, end: 20050101

REACTIONS (3)
  - DYSKINESIA [None]
  - INTERVERTEBRAL DISC PROTRUSION [None]
  - MUSCLE SPASMS [None]
